FAERS Safety Report 25243918 (Version 1)
Quarter: 2025Q2

REPORT INFORMATION
  Report Type: Spontaneous
  Country: US (occurrence: US)
  Receive Date: 20250428
  Receipt Date: 20250428
  Transmission Date: 20250716
  Serious: Yes (Other)
  Sender: COOPERSURGICAL
  Company Number: US-COOPERSURGICAL, INC.-2025CPS003173

PATIENT
  Age: 17 Year
  Sex: Female
  Weight: 69.388 kg

DRUGS (2)
  1. PARAGARD T 380A [Suspect]
     Active Substance: COPPER
     Indication: Contraception
     Route: 015
     Dates: start: 20110502
  2. CANNABIS SATIVA SUBSP. INDICA TOP [Concomitant]
     Active Substance: CANNABIS SATIVA SUBSP. INDICA TOP
     Dates: start: 201507

REACTIONS (30)
  - Fallopian tube obstruction [Not Recovered/Not Resolved]
  - Haemorrhagic cyst [Not Recovered/Not Resolved]
  - Infertility female [Not Recovered/Not Resolved]
  - Female sterilisation [Recovered/Resolved]
  - Endometrial ablation [Recovered/Resolved]
  - Reproductive complication associated with device [Not Recovered/Not Resolved]
  - Device breakage [Recovered/Resolved]
  - Foreign body in reproductive tract [Recovered/Resolved]
  - Complication of device removal [Recovered/Resolved]
  - Pelvic inflammatory disease [Unknown]
  - Anxiety [Not Recovered/Not Resolved]
  - Depression [Not Recovered/Not Resolved]
  - Procedural pain [Recovered/Resolved]
  - Emotional disorder [Unknown]
  - Mental disorder [Unknown]
  - Psychological trauma [Unknown]
  - Dyspareunia [Recovered/Resolved]
  - Hypersensitivity [Recovered/Resolved]
  - Dysmenorrhoea [Not Recovered/Not Resolved]
  - Muscle spasms [Not Recovered/Not Resolved]
  - Pain [Not Recovered/Not Resolved]
  - Heavy menstrual bleeding [Not Recovered/Not Resolved]
  - Vaginal infection [Not Recovered/Not Resolved]
  - Intermenstrual bleeding [Unknown]
  - Abdominal distension [Recovered/Resolved]
  - Pelvic infection [Recovered/Resolved]
  - Anaemia [Recovered/Resolved]
  - Device dislocation [Recovered/Resolved]
  - Abnormal uterine bleeding [Unknown]
  - Device expulsion [Recovered/Resolved]

NARRATIVE: CASE EVENT DATE: 20110502
